FAERS Safety Report 22792534 (Version 4)
Quarter: 2025Q2

REPORT INFORMATION
  Report Type: Spontaneous
  Country: PT (occurrence: PT)
  Receive Date: 20230807
  Receipt Date: 20250513
  Transmission Date: 20250717
  Serious: Yes (Hospitalization, Other)
  Sender: AUROBINDO
  Company Number: PT-Accord-369240

PATIENT
  Age: 83 Year
  Sex: Female

DRUGS (4)
  1. LINEZOLID [Suspect]
     Active Substance: LINEZOLID
     Indication: Antibiotic therapy
     Route: 065
  2. LINEZOLID [Suspect]
     Active Substance: LINEZOLID
     Indication: Intervertebral discitis
  3. CEFTRIAXONE [Concomitant]
     Active Substance: CEFTRIAXONE
     Indication: Intervertebral discitis
     Route: 065
  4. METRONIDAZOLE [Concomitant]
     Active Substance: METRONIDAZOLE
     Indication: Intervertebral discitis
     Route: 065

REACTIONS (7)
  - Myelosuppression [Recovering/Resolving]
  - Encephalitis [Recovered/Resolved]
  - Lactic acidosis [Recovered/Resolved]
  - Urosepsis [Recovered/Resolved]
  - Septic shock [Recovered/Resolved]
  - Bicytopenia [Recovered/Resolved]
  - Ecthyma [Recovered/Resolved]
